FAERS Safety Report 16283335 (Version 2)
Quarter: 2019Q2

REPORT INFORMATION
  Report Type: Report from Study
  Country: IE (occurrence: IE)
  Receive Date: 20190507
  Receipt Date: 20190521
  Transmission Date: 20190711
  Serious: Yes (Hospitalization)
  Sender: FDA-Public Use
  Company Number: IE-PFIZER INC-2019186243

PATIENT
  Weight: 36.15 kg

DRUGS (14)
  1. SULFAMETHOXAZOLE/TRIMETHOPRIM [Suspect]
     Active Substance: SULFAMETHOXAZOLE\TRIMETHOPRIM
     Dosage: 960 MG, EVERY SIX HOURS
     Route: 048
     Dates: start: 20190329, end: 20190403
  2. CLARITHROMYCIN. [Concomitant]
     Active Substance: CLARITHROMYCIN
     Indication: BACTERIAL INFECTION
     Dosage: 300 MG, 2X/DAY
     Dates: start: 20190320, end: 20190326
  3. CYCLIZINE [Concomitant]
     Active Substance: CYCLIZINE
     Indication: PROPHYLAXIS OF NAUSEA AND VOMITING
     Dosage: 25 MG, 3X/DAY (EVERY 8 HR)
     Dates: start: 20190329, end: 20190330
  4. GEMTUZUMAB OZOGAMICIN [Suspect]
     Active Substance: GEMTUZUMAB OZOGAMICIN
     Indication: ACUTE MYELOID LEUKAEMIA
     Dosage: 3.8 MG, UNK
     Route: 042
     Dates: start: 20190309, end: 20190319
  5. SULFAMETHOXAZOLE/TRIMETHOPRIM [Suspect]
     Active Substance: SULFAMETHOXAZOLE\TRIMETHOPRIM
     Dosage: 960 MG, EVERY SIX HOURS
     Route: 042
     Dates: start: 20190324, end: 20190329
  6. LANSOPRAZOLE. [Concomitant]
     Active Substance: LANSOPRAZOLE
     Indication: PROPHYLAXIS
     Dosage: 15 MG, 2X/DAY
     Dates: start: 20190324, end: 20190331
  7. PARACETAMOL [Concomitant]
     Active Substance: ACETAMINOPHEN
     Indication: PYREXIA
     Dosage: 542 MG, UNK (4-6 HR)
     Dates: start: 20190323, end: 20190329
  8. AMPHOTERICIN B, LIPOSOME [Concomitant]
     Active Substance: AMPHOTERICIN B
     Indication: FUNGAL INFECTION
     Dosage: 120 MG, 1X/DAY
     Dates: start: 20190319, end: 20190330
  9. VORICONAZOLE. [Concomitant]
     Active Substance: VORICONAZOLE
     Indication: ANTIFUNGAL PROPHYLAXIS
     Dosage: 350 MG, 2X/DAY
     Dates: start: 20190402, end: 20190403
  10. TEICOPLANIN [Concomitant]
     Active Substance: TEICOPLANIN
     Indication: BACTERIAL INFECTION
     Dosage: 360 MG, 2X/DAY
     Dates: start: 20190330, end: 20190330
  11. MEROPENEM. [Concomitant]
     Active Substance: MEROPENEM
     Indication: BACTERIAL INFECTION
     Dosage: 800 MG, 3X/DAY (EVERY 8 HR)
     Dates: start: 20190316, end: 201904
  12. ONDANSETRON [Concomitant]
     Active Substance: ONDANSETRON
     Indication: PROPHYLAXIS OF NAUSEA AND VOMITING
     Dosage: 4 MG, 3X/DAY (EVERY 8 HR)
     Dates: start: 20190329, end: 20190330
  13. MITOXANTRONE HCL [Suspect]
     Active Substance: MITOXANTRONE HYDROCHLORIDE
     Indication: ACUTE MYELOID LEUKAEMIA
     Dosage: 15.2 MG/M2, 1X/DAY
     Route: 042
     Dates: start: 20190315, end: 20190318
  14. AMILORIDE [Concomitant]
     Active Substance: AMILORIDE
     Indication: PROPHYLAXIS
     Dosage: 8 MG, 2X/DAY
     Dates: start: 20190329, end: 20190330

REACTIONS (1)
  - Inappropriate antidiuretic hormone secretion [Not Recovered/Not Resolved]

NARRATIVE: CASE EVENT DATE: 20190403
